FAERS Safety Report 25509070 (Version 1)
Quarter: 2025Q3

REPORT INFORMATION
  Report Type: Spontaneous
  Country: EU (occurrence: EU)
  Receive Date: 20250703
  Receipt Date: 20250703
  Transmission Date: 20251021
  Serious: Yes (Death)
  Sender: TEVA
  Company Number: None

PATIENT
  Age: 44 Year
  Sex: Male

DRUGS (5)
  1. ETOPOSIDE [Interacting]
     Active Substance: ETOPOSIDE
     Indication: Peripheral T-cell lymphoma unspecified stage IV
     Dosage: ETOPOSIDO (518A)
     Route: 042
     Dates: start: 20250228, end: 20250302
  2. CYCLOPHOSPHAMIDE [Interacting]
     Active Substance: CYCLOPHOSPHAMIDE
     Indication: Peripheral T-cell lymphoma unspecified stage IV
     Route: 042
     Dates: start: 20250228, end: 20250228
  3. RASBURICASA [Concomitant]
     Indication: Peripheral T-cell lymphoma unspecified stage IV
     Dosage: RASBURICASA (1237A)
     Route: 042
     Dates: start: 20250228, end: 20250302
  4. ACYCLOVIR [Concomitant]
     Active Substance: ACYCLOVIR
     Indication: Product used for unknown indication
     Dosage: ACICLOVIR (201A)
     Route: 042
     Dates: start: 20250226, end: 20250317
  5. FLUCONAZOLE [Concomitant]
     Active Substance: FLUCONAZOLE
     Indication: Product used for unknown indication
     Dosage: FLUCONAZOL (2432A)
     Route: 042
     Dates: start: 20250228, end: 20250309

REACTIONS (1)
  - Tumour lysis syndrome [Fatal]

NARRATIVE: CASE EVENT DATE: 20250302
